FAERS Safety Report 7482144-3 (Version None)
Quarter: 2011Q2

REPORT INFORMATION
  Report Type: 
  Country: None (occurrence: None)
  Receive Date: 20110516
  Receipt Date: 20110511
  Transmission Date: 20111010
  Serious: Yes (Other)
  Sender: FDA-Public Use
  Company Number: BR-PFIZER INC-2011101833

PATIENT
  Age: 56 Year
  Sex: Female
  Weight: 68 kg

DRUGS (8)
  1. ABLOK PLUS [Concomitant]
     Indication: BLOOD PRESSURE INCREASED
     Dosage: 50 MG, 1X/DAY
     Dates: start: 20110301
  2. CLONAZEPAM [Concomitant]
     Indication: INSOMNIA
     Dosage: 2.5 MG, 10 DROPS 1X/DAY
     Dates: start: 20090101
  3. ROHYPNOL [Concomitant]
     Indication: INSOMNIA
     Dosage: 0.5 MG (HALF TABLET OF 1MG), 1X/DAY
     Dates: start: 20090101
  4. VARENICLINE TARTRATE [Suspect]
     Indication: TOBACCO ABUSE
     Dosage: UNK
     Route: 048
     Dates: start: 20110405, end: 20110101
  5. VARENICLINE TARTRATE [Suspect]
     Dosage: 1 MG, 2X/DAY
     Route: 048
     Dates: start: 20110101
  6. MULTI-VITAMINS [Concomitant]
     Indication: OBESITY SURGERY
     Dosage: 1X/DAY
     Dates: start: 20060101
  7. EXODUS [Concomitant]
     Indication: INSOMNIA
     Dosage: 2.5 MG, 10 DROPS 1X/DAY
  8. MULTI-VITAMINS [Concomitant]
     Indication: COLECTOMY

REACTIONS (2)
  - BLOOD PRESSURE INCREASED [None]
  - HEADACHE [None]
